FAERS Safety Report 13946677 (Version 2)
Quarter: 2017Q3

REPORT INFORMATION
  Report Type: Spontaneous
  Country: JP (occurrence: JP)
  Receive Date: 20170907
  Receipt Date: 20170927
  Transmission Date: 20171128
  Serious: Yes (Other)
  Sender: FDA-Public Use
  Company Number: JP-PFIZER INC-2017376915

PATIENT
  Age: 68 Year
  Sex: Male
  Weight: 47.3 kg

DRUGS (1)
  1. BENEFIX [Suspect]
     Active Substance: COAGULATION FACTOR IX RECOMBINANT HUMAN\ISOPROPYL ALCOHOL
     Dosage: 2000 IU, 1X/DAY
     Route: 042
     Dates: start: 20130815

REACTIONS (4)
  - Condition aggravated [Not Recovered/Not Resolved]
  - Haematuria [Not Recovered/Not Resolved]
  - Iron deficiency anaemia [Recovering/Resolving]
  - Product use in unapproved indication [Unknown]

NARRATIVE: CASE EVENT DATE: 20160101
